FAERS Safety Report 7586629-0 (Version None)
Quarter: 2011Q3

REPORT INFORMATION
  Report Type: 
  Country: None (occurrence: None)
  Receive Date: 20110701
  Receipt Date: 20110629
  Transmission Date: 20111222
  Serious: Yes (Other)
  Sender: FDA-Public Use
  Company Number: US-AMGEN-USASP2011000144

PATIENT
  Age: 83 Year
  Sex: Female
  Weight: 80 kg

DRUGS (12)
  1. NORVASC [Concomitant]
  2. DIOVAN [Concomitant]
  3. MULTIVITAMIN [Concomitant]
  4. LOTREL [Concomitant]
  5. NPLATE [Suspect]
     Indication: IDIOPATHIC THROMBOCYTOPENIC PURPURA
     Dosage: 415.9 A?G, QWK
     Dates: start: 20101213, end: 20110124
  6. NPLATE [Suspect]
     Dates: start: 20101213
  7. CALCIUM WITH VITAMIN D [Concomitant]
  8. INSULIN [Concomitant]
  9. LIPITOR [Concomitant]
  10. DECADRON [Concomitant]
  11. FLONASE [Concomitant]
  12. PEPCID [Concomitant]

REACTIONS (2)
  - THROMBOCYTOSIS [None]
  - DRUG INEFFECTIVE [None]
